FAERS Safety Report 23568717 (Version 1)
Quarter: 2024Q1

REPORT INFORMATION
  Report Type: Report from Study
  Country: CA (occurrence: None)
  Receive Date: 20240227
  Receipt Date: 20240227
  Transmission Date: 20240410
  Serious: Yes (Hospitalization)
  Sender: FDA-Public Use
  Company Number: 2024A046564

PATIENT
  Sex: Female

DRUGS (5)
  1. TEZSPIRE [Suspect]
     Active Substance: TEZEPELUMAB-EKKO
     Indication: Asthma
     Route: 058
     Dates: start: 20230907
  2. FLUTICASONE FUROATE [Concomitant]
     Active Substance: FLUTICASONE FUROATE
     Dosage: 2 SPRAYS IN EACH NOSTRIL2 SPRAYS IN EACH NOSTRIL
     Dates: start: 2023
  3. SYMBICORT [Concomitant]
     Active Substance: BUDESONIDE\FORMOTEROL FUMARATE DIHYDRATE
     Dosage: 200MCG 2 INH 3X
  4. ALVESCO [Concomitant]
     Active Substance: CICLESONIDE
     Dosage: 200MCG 2 INH
  5. VENTOLIN [Concomitant]
     Active Substance: ALBUTEROL SULFATE
     Dosage: 100MCG 2 INH. 1 -2 TIMES A WEEK

REACTIONS (7)
  - Asthma [Unknown]
  - Infection [Unknown]
  - Oropharyngeal pain [Unknown]
  - Incorrect route of product administration [Unknown]
  - Costochondritis [Unknown]
  - Drug ineffective [Unknown]
  - Insurance issue [Unknown]
